FAERS Safety Report 24383105 (Version 1)
Quarter: 2024Q4

REPORT INFORMATION
  Report Type: Spontaneous
  Country: US (occurrence: US)
  Receive Date: 20241001
  Receipt Date: 20241001
  Transmission Date: 20250114
  Serious: No
  Sender: CATALYST PHARMA
  Company Number: US-CATALYST PHARMACEUTICALS-US-CATA-24-00384

PATIENT
  Age: 9 Year
  Sex: Male
  Weight: 33.107 kg

DRUGS (3)
  1. AGAMREE [Suspect]
     Active Substance: VAMOROLONE
     Indication: Duchenne muscular dystrophy
     Dosage: 4.8 ML A DAY
     Route: 048
     Dates: start: 20240426
  2. CHILDREN^S TYLENOL COLD + COUGH [Concomitant]
     Indication: Cough
     Dosage: 5 ML AS NEEDED
     Route: 048
  3. CHILDREN^S TYLENOL COLD + COUGH [Concomitant]
     Indication: Rhinorrhoea

REACTIONS (6)
  - Nasopharyngitis [Not Recovered/Not Resolved]
  - Oropharyngeal pain [Not Recovered/Not Resolved]
  - Pyrexia [Not Recovered/Not Resolved]
  - Pollakiuria [Not Recovered/Not Resolved]
  - Increased appetite [Not Recovered/Not Resolved]
  - Weight increased [Not Recovered/Not Resolved]

NARRATIVE: CASE EVENT DATE: 20240426
